FAERS Safety Report 5345735-1 (Version None)
Quarter: 2007Q2

REPORT INFORMATION
  Report Type: 
  Country: None (occurrence: None)
  Receive Date: 20070605
  Receipt Date: 20060925
  Transmission Date: 20071010
  Serious: No
  Sender: FDA-Public Use
  Company Number: US-BAXTER-2006BH013606

PATIENT
  Age: 30 Year
  Sex: Female

DRUGS (7)
  1. OXYTOCIN [Suspect]
     Indication: LABOUR INDUCTION
     Route: 065
  2. OXYTOCIN [Suspect]
     Route: 065
  3. OXYTOCIN [Suspect]
     Route: 065
  4. OXYTOCIN [Suspect]
     Route: 065
  5. OXYTOCIN [Suspect]
     Route: 065
  6. OXYTOCIN [Suspect]
     Route: 065
  7. OXYTOCIN [Suspect]
     Route: 065

REACTIONS (2)
  - DRUG ADMINISTRATION ERROR [None]
  - UTERINE RUPTURE [None]
